FAERS Safety Report 4376123-2 (Version None)
Quarter: 2004Q2

REPORT INFORMATION
  Report Type: 
  Country: None (occurrence: None)
  Receive Date: 20040609
  Receipt Date: 20040609
  Transmission Date: 20050107
  Serious: Yes (Life-Threatening)
  Sender: FDA-Public Use
  Company Number: None

PATIENT
  Age: 60 Year
  Sex: Female
  Weight: 72.5755 kg

DRUGS (2)
  1. OXALIPLATIN (SANOFE-SYNTHIBO) 110 MG [Suspect]
     Indication: COLON CANCER
     Dosage: 110 MG IV [13 DOSES]
     Route: 042
  2. FLUOROURACIL [Concomitant]

REACTIONS (3)
  - CHEILITIS [None]
  - PRURITUS [None]
  - SWELLING FACE [None]
